FAERS Safety Report 8709643 (Version 2)
Quarter: 2012Q4

REPORT INFORMATION
  Report Type: 
  Country: JP (occurrence: JP)
  Receive Date: 20120806
  Receipt Date: 20121011
  Transmission Date: 20130627
  Serious: Yes (Hospitalization)
  Sender: FDA-Public Use
  Company Number: JP-GLAXOSMITHKLINE-B0820066A

PATIENT
  Age: 70 Year
  Sex: Male

DRUGS (10)
  1. LAMICTAL [Suspect]
     Indication: BIPOLAR I DISORDER
     Dosage: 25MG Per day
     Route: 048
     Dates: start: 20120604, end: 20120618
  2. LAMICTAL [Suspect]
     Indication: BIPOLAR I DISORDER
     Dosage: 25MG Per day
     Route: 048
     Dates: start: 20120618, end: 20120706
  3. LAMICTAL [Suspect]
     Indication: BIPOLAR I DISORDER
     Dosage: 25MG Twice per day
     Route: 048
     Dates: start: 20120706, end: 20120719
  4. LAMICTAL [Suspect]
     Indication: BIPOLAR I DISORDER
     Route: 048
     Dates: start: 20120719, end: 20120726
  5. SELENICA [Suspect]
     Indication: BIPOLAR I DISORDER
     Dosage: 800MG Per day
     Route: 048
     Dates: end: 20120723
  6. LIMAS [Concomitant]
     Indication: BIPOLAR I DISORDER
     Dosage: 200MG Three times per day
     Route: 048
  7. RIVOTRIL [Concomitant]
     Indication: BIPOLAR I DISORDER
     Dosage: .5MG Four times per day
     Route: 048
  8. TASMOLIN [Concomitant]
     Indication: BIPOLAR I DISORDER
     Dosage: 1MG Per day
     Route: 048
  9. RISPERDAL [Concomitant]
     Indication: BIPOLAR I DISORDER
     Dosage: .5ML Per day
     Route: 048
  10. FLUNITRAZEPAM [Concomitant]
     Indication: BIPOLAR DISORDER
     Route: 065

REACTIONS (6)
  - Parkinsonism [Recovering/Resolving]
  - Activities of daily living impaired [Unknown]
  - Hyperammonaemia [Unknown]
  - Muscle rigidity [Unknown]
  - Tremor [Unknown]
  - Posture abnormal [Unknown]
